FAERS Safety Report 6803357-7 (Version None)
Quarter: 2010Q2

REPORT INFORMATION
  Report Type: 
  Country: None (occurrence: None)
  Receive Date: 20100628
  Receipt Date: 20100616
  Transmission Date: 20101027
  Serious: Yes (Other)
  Sender: FDA-Public Use
  Company Number: US-PFIZER INC-2010076143

PATIENT
  Sex: Male
  Weight: 113.38 kg

DRUGS (3)
  1. TOVIAZ [Suspect]
     Indication: HYPERTONIC BLADDER
     Dosage: 4 MG, 1X/DAY
     Route: 048
     Dates: start: 20100615
  2. TYLENOL [Concomitant]
     Indication: ARTHROPATHY
     Dosage: UNK
     Route: 048
  3. DICLOFENAC [Concomitant]
     Indication: ARTHROPATHY
     Dosage: 75 MG, 1X/DAY
     Route: 048

REACTIONS (2)
  - CONFUSIONAL STATE [None]
  - THINKING ABNORMAL [None]
